FAERS Safety Report 7112135-3 (Version None)
Quarter: 2010Q4

REPORT INFORMATION
  Report Type: 
  Country: None (occurrence: None)
  Receive Date: 20101119
  Receipt Date: 20091208
  Transmission Date: 20110411
  Serious: No
  Sender: FDA-Public Use
  Company Number: A0834824A

PATIENT
  Sex: Male

DRUGS (1)
  1. AVODART [Suspect]

REACTIONS (4)
  - BREAST MASS [None]
  - BREAST PAIN [None]
  - BREAST SWELLING [None]
  - SENSORY DISTURBANCE [None]
